FAERS Safety Report 9051377 (Version 2)
Quarter: 2013Q1

REPORT INFORMATION
  Report Type: Spontaneous
  Country: BR (occurrence: BR)
  Receive Date: 20130206
  Receipt Date: 20130208
  Transmission Date: 20140127
  Serious: Yes (Hospitalization, Other)
  Sender: FDA-Public Use
  Company Number: BR-PFIZER INC-2013046134

PATIENT
  Age: 65 Year
  Sex: Female

DRUGS (3)
  1. CELEBRA [Suspect]
     Dosage: UNK
     Route: 048
  2. PREDNISONE [Suspect]
     Dosage: UNK
  3. NIMESULIDE [Suspect]
     Dosage: UNK

REACTIONS (4)
  - Incorrect dose administered [Unknown]
  - Swelling [Unknown]
  - Urinary incontinence [Unknown]
  - Toxicity to various agents [Unknown]
